FAERS Safety Report 5965774-7 (Version None)
Quarter: 2008Q4

REPORT INFORMATION
  Report Type: 
  Country: None (occurrence: None)
  Receive Date: 20081121
  Receipt Date: 20081121
  Transmission Date: 20090506
  Serious: Yes (Other)
  Sender: FDA-Public Use
  Company Number: None

PATIENT
  Age: 40 Year
  Sex: Female
  Weight: 81.6475 kg

DRUGS (3)
  1. LEVOTHYROXINE SODIUM [Suspect]
     Indication: HYPOTHYROIDISM
     Dosage: 0.075 MCG ONCE PER DAY PO
     Route: 048
     Dates: start: 20080412, end: 20080721
  2. LEVOTHYROXINE SODIUM [Suspect]
     Indication: THYROID NEOPLASM
     Dosage: 0.088 MCG ONCE PER DAY PO
     Route: 048
  3. SYNTHROID [Suspect]

REACTIONS (13)
  - AFFECT LABILITY [None]
  - ALOPECIA [None]
  - CARDIOVASCULAR DISORDER [None]
  - CHEST DISCOMFORT [None]
  - DIZZINESS [None]
  - DRUG DISPENSING ERROR [None]
  - DYSPNOEA [None]
  - FEELING ABNORMAL [None]
  - HEART RATE IRREGULAR [None]
  - HYPOAESTHESIA [None]
  - MYOCARDIAL INFARCTION [None]
  - PRODUCT QUALITY ISSUE [None]
  - WEIGHT INCREASED [None]
